FAERS Safety Report 9424667 (Version 2)
Quarter: 2013Q3

REPORT INFORMATION
  Report Type: Spontaneous
  Country: JP (occurrence: JP)
  Receive Date: 20130729
  Receipt Date: 20130809
  Transmission Date: 20140515
  Serious: Yes (Hospitalization)
  Sender: FDA-Public Use
  Company Number: JP-PFIZER INC-2013218303

PATIENT
  Age: 72 Year
  Sex: Male

DRUGS (2)
  1. ARGATROBAN [Suspect]
     Indication: CEREBRAL INFARCTION
     Dosage: UNK
     Route: 042
  2. GRTPA [Suspect]
     Indication: CEREBRAL INFARCTION
     Dosage: UNK
     Route: 042

REACTIONS (2)
  - Melaena [Unknown]
  - Haemoglobin decreased [Unknown]
